FAERS Safety Report 4501661-9 (Version None)
Quarter: 2004Q4

REPORT INFORMATION
  Report Type: 
  Country: None (occurrence: None)
  Receive Date: 20041115
  Receipt Date: 20041115
  Transmission Date: 20050328
  Serious: Yes (Hospitalization)
  Sender: FDA-Public Use
  Company Number: None

PATIENT
  Age: 50 Year
  Sex: Male
  Weight: 67 kg

DRUGS (11)
  1. FIORICET [Suspect]
  2. MORPHINE SULFATE [Suspect]
  3. COMBIVIR [Concomitant]
  4. EFAVIRENZ [Concomitant]
  5. FIORICET EQUIV [Concomitant]
  6. IBUPROFEN [Concomitant]
  7. PAROXETINE HCL [Concomitant]
  8. PROCHLORPERAZINE [Concomitant]
  9. BACITRACIN TOPICAL OINTMENT [Concomitant]
  10. CLONAZEPAM [Concomitant]
  11. GABAPENTIN [Concomitant]

REACTIONS (1)
  - LETHARGY [None]
